FAERS Safety Report 9939271 (Version 1)
Quarter: 2014Q1

REPORT INFORMATION
  Report Type: Report from Study
  Country: US (occurrence: US)
  Receive Date: 20140303
  Receipt Date: 20140303
  Transmission Date: 20141002
  Serious: No
  Sender: FDA-Public Use
  Company Number: US-ABBVIE-13P-163-1037441-00

PATIENT
  Age: 44 Year
  Sex: Male
  Weight: 90.8 kg

DRUGS (4)
  1. HUMIRA [Suspect]
     Indication: SPONDYLOARTHROPATHY
     Dates: start: 20121227
  2. CELEBREX [Concomitant]
     Indication: INFLAMMATION
  3. LUTEIN [Concomitant]
     Indication: EYE DISORDER
  4. SERUM DROPS [Concomitant]
     Indication: EYE DISORDER

REACTIONS (1)
  - Off label use [Not Recovered/Not Resolved]
